FAERS Safety Report 20567154 (Version 6)
Quarter: 2025Q2

REPORT INFORMATION
  Report Type: Spontaneous
  Country: ES (occurrence: ES)
  Receive Date: 20220308
  Receipt Date: 20250523
  Transmission Date: 20250717
  Serious: Yes (Death, Hospitalization, Other)
  Sender: PFIZER
  Company Number: ES-Accord-239065

PATIENT
  Age: 76 Year
  Sex: Female
  Weight: 51.3 kg

DRUGS (53)
  1. OXALIPLATIN [Suspect]
     Active Substance: OXALIPLATIN
     Indication: Diffuse large B-cell lymphoma
     Route: 042
  2. OXALIPLATIN [Suspect]
     Active Substance: OXALIPLATIN
     Route: 042
     Dates: start: 20210810, end: 20210810
  3. OXALIPLATIN [Suspect]
     Active Substance: OXALIPLATIN
     Route: 042
     Dates: start: 20210831
  4. OXALIPLATIN [Suspect]
     Active Substance: OXALIPLATIN
     Route: 042
     Dates: start: 20210914
  5. GEMCITABINE HYDROCHLORIDE [Suspect]
     Active Substance: GEMCITABINE HYDROCHLORIDE
     Indication: Diffuse large B-cell lymphoma
  6. GEMCITABINE HYDROCHLORIDE [Suspect]
     Active Substance: GEMCITABINE HYDROCHLORIDE
     Route: 042
     Dates: start: 20210810, end: 20210810
  7. GEMCITABINE HYDROCHLORIDE [Suspect]
     Active Substance: GEMCITABINE HYDROCHLORIDE
     Route: 042
     Dates: start: 20210831, end: 20210831
  8. GEMCITABINE HYDROCHLORIDE [Suspect]
     Active Substance: GEMCITABINE HYDROCHLORIDE
     Route: 042
     Dates: start: 20210914
  9. EPCORITAMAB [Suspect]
     Active Substance: EPCORITAMAB
     Dosage: 48 MG, WEEKLY (FULL DOSE)
     Route: 058
     Dates: start: 20210831
  10. EPCORITAMAB [Suspect]
     Active Substance: EPCORITAMAB
     Route: 058
     Dates: start: 20210817, end: 20210817
  11. EPCORITAMAB [Suspect]
     Active Substance: EPCORITAMAB
     Route: 058
     Dates: start: 20210810, end: 20210810
  12. ACETAMINOPHEN [Concomitant]
     Active Substance: ACETAMINOPHEN
     Indication: Premedication
     Dates: start: 20210817, end: 20210907
  13. DEXCHLORPHENIRAMINE MALEATE [Concomitant]
     Active Substance: DEXCHLORPHENIRAMINE MALEATE
     Indication: Premedication
     Route: 042
     Dates: start: 20210817, end: 20210907
  14. LORAZEPAM [Concomitant]
     Active Substance: LORAZEPAM
     Dates: start: 20210420
  15. ALLOPURINOL [Concomitant]
     Active Substance: ALLOPURINOL
     Dates: start: 202102
  16. SULFAMETHOXAZOLE\TRIMETHOPRIM [Concomitant]
     Active Substance: SULFAMETHOXAZOLE\TRIMETHOPRIM
     Dates: start: 202102
  17. MAGNESIUM [Concomitant]
     Active Substance: MAGNESIUM
     Dates: start: 20210309
  18. MAGNESIUM [Concomitant]
     Active Substance: MAGNESIUM
     Dates: start: 202107
  19. FUROSEMIDE [Concomitant]
     Active Substance: FUROSEMIDE
     Dates: start: 20210810, end: 20210906
  20. FUROSEMIDE [Concomitant]
     Active Substance: FUROSEMIDE
     Dates: start: 20210813, end: 20210815
  21. METILPREDNISOLONA [METHYLPREDNISOLONE ACETATE] [Concomitant]
     Indication: Prophylaxis
     Dates: start: 20210810, end: 20210813
  22. METILPREDNISOLONA [METHYLPREDNISOLONE ACETATE] [Concomitant]
     Route: 042
     Dates: start: 20210811, end: 20210910
  23. METILPREDNISOLONA [METHYLPREDNISOLONE ACETATE] [Concomitant]
     Dates: start: 20210817, end: 20210820
  24. METILPREDNISOLONA [METHYLPREDNISOLONE ACETATE] [Concomitant]
     Dates: start: 20210831, end: 20210904
  25. METILPREDNISOLONA [METHYLPREDNISOLONE ACETATE] [Concomitant]
     Dates: start: 20210907, end: 20210910
  26. DEXCHLORPHENIRAMIN [DEXCHLORPHENIRAMINE] [Concomitant]
     Dates: start: 20210914, end: 20210914
  27. FLUCONAZOLE [Concomitant]
     Active Substance: FLUCONAZOLE
     Dates: start: 20210903, end: 20210912
  28. OMEPRAZOLE [Concomitant]
     Active Substance: OMEPRAZOLE
     Dates: start: 20210420
  29. AMLODIPINE BESYLATE [Concomitant]
     Active Substance: AMLODIPINE BESYLATE
     Dates: start: 202102
  30. AMLODIPINE BESYLATE [Concomitant]
     Active Substance: AMLODIPINE BESYLATE
     Dates: start: 20210905
  31. BEMIPARIN SODIUM [Concomitant]
     Active Substance: BEMIPARIN SODIUM
     Dates: start: 20210202
  32. OSTINE [Concomitant]
     Dates: start: 20210825, end: 20210906
  33. POTASSIUM CHLORIDE [Concomitant]
     Active Substance: POTASSIUM CHLORIDE
     Dates: start: 20210826, end: 20210828
  34. FILGRASTIM [Concomitant]
     Active Substance: FILGRASTIM
     Dates: start: 20210816, end: 20210816
  35. SODIUM BICARBONATE [Concomitant]
     Active Substance: SODIUM BICARBONATE
     Dates: start: 20210903, end: 20210905
  36. POTASSIUM PHOSPHATES [Concomitant]
     Active Substance: POTASSIUM PHOSPHATE, DIBASIC\POTASSIUM PHOSPHATE, MONOBASIC
     Dates: start: 20210824, end: 20210826
  37. PANTOPRAZOLE [Concomitant]
     Active Substance: PANTOPRAZOLE
     Dates: start: 20210816, end: 20210819
  38. PREDNISONE [Concomitant]
     Active Substance: PREDNISONE
     Indication: Prophylaxis
     Route: 048
     Dates: start: 20210907, end: 20210910
  39. LEVOFLOXACIN [Concomitant]
     Active Substance: LEVOFLOXACIN
     Dates: start: 20210903, end: 20210905
  40. RASBURICASE [Concomitant]
     Active Substance: RASBURICASE
     Dates: start: 20210810, end: 20210907
  41. SUPLECAL [CALCIUM CARBONATE] [Concomitant]
     Dates: start: 20210810, end: 20210826
  42. ALBUMIN HUMAN [Concomitant]
     Active Substance: ALBUMIN HUMAN
     Dates: start: 20210810, end: 20210906
  43. CALCIUM CHLORIDE [Concomitant]
     Active Substance: CALCIUM CHLORIDE
     Dates: start: 20210901, end: 20210905
  44. TRIMETHOPRIM [Concomitant]
     Active Substance: TRIMETHOPRIM
     Dates: start: 20210810, end: 20210822
  45. ONDANSETRON HYDROCHLORIDE [Concomitant]
     Active Substance: ONDANSETRON HYDROCHLORIDE
     Dates: start: 20210810, end: 20210902
  46. TEICOPLANIN [Concomitant]
     Active Substance: TEICOPLANIN
     Dates: start: 20210902, end: 20210902
  47. MEPERIDINE [Concomitant]
     Active Substance: MEPERIDINE
     Dates: start: 20210902, end: 20210902
  48. LOSARTAN [Concomitant]
     Active Substance: LOSARTAN
     Dates: start: 20210904, end: 202109
  49. SULFAMETHOXAZOLE [Concomitant]
     Active Substance: SULFAMETHOXAZOLE
     Dates: start: 20210810, end: 20210822
  50. CALCIUM CARBONATE [Concomitant]
     Active Substance: CALCIUM CARBONATE
     Dates: start: 20210813, end: 20210822
  51. SULMETIN [Concomitant]
     Dates: start: 20210816, end: 20210915
  52. METOCLOPRAMIDE [Concomitant]
     Active Substance: METOCLOPRAMIDE
     Dates: start: 20210816, end: 20210915
  53. ONDANSETRON HYDROCHLORIDE [Concomitant]
     Active Substance: ONDANSETRON HYDROCHLORIDE
     Dates: start: 20210810, end: 20210902

REACTIONS (5)
  - Malignant neoplasm progression [Fatal]
  - Diffuse large B-cell lymphoma [Fatal]
  - Febrile neutropenia [Recovered/Resolved]
  - Cytokine release syndrome [Recovered/Resolved]
  - Off label use [Unknown]

NARRATIVE: CASE EVENT DATE: 20210823
